FAERS Safety Report 13895716 (Version 1)
Quarter: 2017Q3

REPORT INFORMATION
  Report Type: Spontaneous
  Country: US (occurrence: None)
  Receive Date: 20170817
  Receipt Date: 20170817
  Transmission Date: 20171127
  Serious: No
  Sender: FDA-Public Use
  Company Number: None

PATIENT
  Sex: Male

DRUGS (1)
  1. STELARA [Suspect]
     Active Substance: USTEKINUMAB
     Indication: JUVENILE IDIOPATHIC ARTHRITIS
     Dosage: FREQUENCY - Q 12 WEEK
     Route: 058

REACTIONS (1)
  - Diarrhoea [None]
